FAERS Safety Report 12662950 (Version 2)
Quarter: 2016Q4

REPORT INFORMATION
  Report Type: Report from Study
  Country: KZ (occurrence: KZ)
  Receive Date: 20160818
  Receipt Date: 20161201
  Transmission Date: 20170207
  Serious: Yes (Other)
  Sender: FDA-Public Use
  Company Number: KZ-ROCHE-1815936

PATIENT

DRUGS (3)
  1. ALTEPLASE [Suspect]
     Active Substance: ALTEPLASE
     Dosage: INFUSION OF 50 MG WITHIN HALF AN HOUR
     Route: 042
  2. ALTEPLASE [Suspect]
     Active Substance: ALTEPLASE
     Dosage: THEN AN INFUSION OF 35 MG WITHIN ONE HOUR UP TO THE DOSE OF 100 MG
     Route: 042
  3. ALTEPLASE [Suspect]
     Active Substance: ALTEPLASE
     Indication: ACUTE MYOCARDIAL INFARCTION
     Route: 040

REACTIONS (2)
  - Vascular stent thrombosis [Unknown]
  - Pain [Unknown]
